FAERS Safety Report 6163530-0 (Version None)
Quarter: 2009Q2

REPORT INFORMATION
  Report Type: 
  Country: None (occurrence: None)
  Receive Date: 20090422
  Receipt Date: 20090414
  Transmission Date: 20091009
  Serious: Yes (Hospitalization)
  Sender: FDA-Public Use
  Company Number: US-BIOGENIDEC-2009BI007550

PATIENT
  Age: 59 Year
  Sex: Female
  Weight: 88 kg

DRUGS (1)
  1. TYSABRI [Suspect]
     Indication: CROHN'S DISEASE
     Route: 042
     Dates: start: 20080801

REACTIONS (5)
  - ADHESIOLYSIS [None]
  - HERNIA REPAIR [None]
  - SEROMA [None]
  - STAPHYLOCOCCAL INFECTION [None]
  - VEIN DISORDER [None]
